FAERS Safety Report 8837682 (Version 2)
Quarter: 2012Q4

REPORT INFORMATION
  Report Type: 
  Country: US (occurrence: US)
  Receive Date: 20121012
  Receipt Date: 20121017
  Transmission Date: 20130627
  Serious: Yes (Other)
  Sender: FDA-Public Use
  Company Number: US-ROCHE-1131205

PATIENT
  Age: 83 Year
  Sex: Female

DRUGS (4)
  1. RITUXAN [Suspect]
     Indication: FACTOR VIII DEFICIENCY
     Route: 042
     Dates: start: 20050111, end: 20050412
  2. RITUXAN [Suspect]
     Indication: OFF LABEL USE
  3. CYCLOPHOSPHAMIDE [Concomitant]
  4. PREDNISONE [Concomitant]

REACTIONS (11)
  - Mental status changes [Unknown]
  - Fatigue [Recovered/Resolved]
  - Chest pain [Unknown]
  - Oedema peripheral [Unknown]
  - Insomnia [Unknown]
  - Anaemia [Unknown]
  - Urinary tract infection [Unknown]
  - Dyspnoea [Unknown]
  - Pyrexia [Unknown]
  - Hypotension [Unknown]
  - Confusional state [Unknown]
